FAERS Safety Report 4437246-2 (Version None)
Quarter: 2004Q3

REPORT INFORMATION
  Report Type: 
  Country: None (occurrence: None)
  Receive Date: 20040827
  Receipt Date: 20040816
  Transmission Date: 20050211
  Serious: Yes (Life-Threatening, Other)
  Sender: FDA-Public Use
  Company Number: 2004-08-0752

PATIENT
  Age: 57 Year
  Sex: Female

DRUGS (2)
  1. CLARITIN HIVES RELIEF [Suspect]
     Indication: URTICARIA
     Dosage: 1  TABLET ORAL
     Route: 048
     Dates: start: 20040815, end: 20040815
  2. BENADRYL [Concomitant]

REACTIONS (8)
  - CONDITION AGGRAVATED [None]
  - DYSPHAGIA [None]
  - EYE SWELLING [None]
  - HOARSENESS [None]
  - PALPITATIONS [None]
  - SWELLING FACE [None]
  - SWOLLEN TONGUE [None]
  - URTICARIA [None]
